FAERS Safety Report 15735169 (Version 2)
Quarter: 2020Q2

REPORT INFORMATION
  Report Type: Report from Study
  Country: AU (occurrence: AU)
  Receive Date: 20181218
  Receipt Date: 20200515
  Transmission Date: 20200713
  Serious: Yes (Hospitalization)
  Sender: FDA-Public Use
  Company Number: AU-JNJFOC-20181215208

PATIENT
  Sex: Male

DRUGS (1)
  1. STELARA [Suspect]
     Active Substance: USTEKINUMAB
     Indication: CROHN^S DISEASE
     Route: 042
     Dates: start: 20181015

REACTIONS (2)
  - Hospitalisation [Unknown]
  - Cellulitis [Unknown]

NARRATIVE: CASE EVENT DATE: 2018
